FAERS Safety Report 9177648 (Version 2)
Quarter: 2013Q1

REPORT INFORMATION
  Report Type: Report from Study
  Country: CH (occurrence: CH)
  Receive Date: 20130321
  Receipt Date: 20130328
  Transmission Date: 20140127
  Serious: Yes (Other)
  Sender: FDA-Public Use
  Company Number: CH-PFIZER INC-2013063602

PATIENT
  Age: 63 Year
  Sex: Female

DRUGS (4)
  1. AROMASIN [Suspect]
     Indication: INVASIVE DUCTAL BREAST CARCINOMA
     Dosage: IN THE MORNING WITH THE BREAKFAST
     Dates: start: 2009, end: 20091225
  2. COSAAR [Concomitant]
     Dosage: IN THE MORNING
  3. BURGERSTEIN VITAMIN C [Concomitant]
  4. BURGERSTEIN EPA [Concomitant]

REACTIONS (8)
  - Sleep disorder [Unknown]
  - Fatigue [Unknown]
  - Photosensitivity reaction [Unknown]
  - Nausea [Unknown]
  - Vomiting [Unknown]
  - Diarrhoea [Unknown]
  - Myalgia [Unknown]
  - Local swelling [Unknown]
